FAERS Safety Report 4307203-5 (Version None)
Quarter: 2004Q1

REPORT INFORMATION
  Report Type: 
  Country: None (occurrence: None)
  Receive Date: 20040225
  Receipt Date: 20040220
  Transmission Date: 20041129
  Serious: Yes (Disabling)
  Sender: FDA-Public Use
  Company Number: 2004200127DK

PATIENT
  Age: 71 Year
  Sex: 0

DRUGS (3)
  1. CABERGOLINE [Suspect]
     Dosage: 4 MG DAY ORAL
     Route: 048
     Dates: start: 20030108, end: 20040107
  2. SINEMET [Concomitant]
  3. COMTESS (ENTACAPONE) [Concomitant]

REACTIONS (3)
  - ANXIETY [None]
  - HYPERVENTILATION [None]
  - SYNCOPE [None]
